FAERS Safety Report 11994053 (Version 1)
Quarter: 2016Q1

REPORT INFORMATION
  Report Type: Spontaneous
  Country: US (occurrence: US)
  Receive Date: 20160203
  Receipt Date: 20160203
  Transmission Date: 20160526
  Serious: No
  Sender: FDA-Public Use
  Company Number: US-UCBSA-2015027459

PATIENT
  Sex: Female

DRUGS (4)
  1. TOPAMAX [Concomitant]
     Active Substance: TOPIRAMATE
     Indication: SEIZURE
     Dosage: UNK
  2. KEPPRA [Suspect]
     Active Substance: LEVETIRACETAM
     Indication: SEIZURE
     Dosage: 250 MG, 2X/DAY (BID)
     Dates: start: 2015
  3. LEVETIRACETAM. [Concomitant]
     Active Substance: LEVETIRACETAM
     Indication: SEIZURE
     Dosage: UNK
  4. OXCARBAZEPINE. [Concomitant]
     Active Substance: OXCARBAZEPINE
     Indication: SEIZURE
     Dosage: UNK

REACTIONS (9)
  - Mouth haemorrhage [Unknown]
  - Fatigue [Unknown]
  - Paraesthesia [Unknown]
  - Asthenia [Unknown]
  - Hypotension [Unknown]
  - Fall [Unknown]
  - Loss of consciousness [Unknown]
  - Syncope [Unknown]
  - Pain in extremity [Unknown]

NARRATIVE: CASE EVENT DATE: 2015
